FAERS Safety Report 5940119-7 (Version None)
Quarter: 2008Q4

REPORT INFORMATION
  Report Type: 
  Country: None (occurrence: None)
  Receive Date: 20081104
  Receipt Date: 20080310
  Transmission Date: 20090506
  Serious: No
  Sender: FDA-Public Use
  Company Number: US-BAYER-200811158BCC

PATIENT
  Age: 68 Year
  Sex: Female
  Weight: 29 kg

DRUGS (6)
  1. ALEVE (CAPLET) [Suspect]
     Indication: ABDOMINAL PAIN UPPER
     Dosage: AS USED: 220 MG  UNIT DOSE: 220 MG
     Route: 048
     Dates: start: 20080309, end: 20080309
  2. ALEVE (CAPLET) [Suspect]
     Dosage: AS USED: 220 MG  UNIT DOSE: 220 MG
     Route: 048
     Dates: start: 20080310
  3. TYLENOL [Suspect]
     Indication: ABDOMINAL PAIN UPPER
     Dates: start: 20080309, end: 20080309
  4. DESYREL [Concomitant]
  5. CLONAZEPAM [Concomitant]
  6. DROPS FOR GLAUCOMA [Concomitant]

REACTIONS (1)
  - ABDOMINAL PAIN UPPER [None]
